FAERS Safety Report 14177265 (Version 1)
Quarter: 2017Q4

REPORT INFORMATION
  Report Type: Spontaneous
  Country: AU (occurrence: AU)
  Receive Date: 20171110
  Receipt Date: 20171110
  Transmission Date: 20180321
  Serious: Yes (Other)
  Sender: FDA-Public Use
  Company Number: AU-ROCHE-2022007

PATIENT
  Sex: Female

DRUGS (2)
  1. LUCENTIS [Suspect]
     Active Substance: RANIBIZUMAB
     Indication: PRODUCT USED FOR UNKNOWN INDICATION
     Dosage: UNK, QMO (MONTHLY)
     Route: 065
     Dates: start: 201602
  2. LUCENTIS [Suspect]
     Active Substance: RANIBIZUMAB
     Dosage: UNK, QMO (MONTHLY)
     Route: 065
     Dates: start: 201702, end: 201702

REACTIONS (2)
  - Polypoidal choroidal vasculopathy [Unknown]
  - Drug ineffective [Unknown]
